FAERS Safety Report 5459510-0 (Version None)
Quarter: 2007Q3

REPORT INFORMATION
  Report Type: 
  Country: None (occurrence: None)
  Receive Date: 20070919
  Receipt Date: 20070911
  Transmission Date: 20080115
  Serious: Yes (Other)
  Sender: FDA-Public Use
  Company Number: B0486610A

PATIENT
  Age: 31 Year
  Sex: Male

DRUGS (1)
  1. ZOVIRAX [Suspect]
     Indication: HERPES SIMPLEX
     Dosage: 400MG TWICE PER DAY
     Route: 048

REACTIONS (1)
  - MACROCYTOSIS [None]
